FAERS Safety Report 19176054 (Version 4)
Quarter: 2021Q3

REPORT INFORMATION
  Report Type: Report from Study
  Country: BR (occurrence: BR)
  Receive Date: 20210424
  Receipt Date: 20210927
  Transmission Date: 20211014
  Serious: Yes (Hospitalization, Disabling, Other)
  Sender: FDA-Public Use
  Company Number: BR-TAKEDA-2021TUS024644

PATIENT
  Age: 30 Year
  Sex: Male

DRUGS (2)
  1. HEMO?8R [Suspect]
     Active Substance: ANTIHEMOPHILIC FACTOR, HUMAN RECOMBINANT
     Indication: FACTOR VIII DEFICIENCY
     Dosage: 2000 INTERNATIONAL UNIT, QOD
     Route: 042
     Dates: start: 19911101
  2. FEIBA NF [Suspect]
     Active Substance: ANTI-INHIBITOR COAGULANT COMPLEX
     Indication: PRODUCT USED FOR UNKNOWN INDICATION
     Dosage: UNK
     Route: 065
     Dates: start: 2018

REACTIONS (32)
  - Blood urine present [Recovered/Resolved]
  - Therapeutic product effect delayed [Unknown]
  - Gingival bleeding [Recovered/Resolved]
  - Influenza [Recovered/Resolved]
  - Nosocomial infection [Recovered/Resolved with Sequelae]
  - Localised infection [Unknown]
  - Ear haemorrhage [Not Recovered/Not Resolved]
  - Post procedural complication [Unknown]
  - Headache [Not Recovered/Not Resolved]
  - Peripheral swelling [Recovered/Resolved]
  - Hypertension [Not Recovered/Not Resolved]
  - Osteomyelitis [Recovered/Resolved]
  - Systemic infection [Recovered/Resolved]
  - Gastrointestinal perforation [Recovered/Resolved with Sequelae]
  - Pruritus allergic [Unknown]
  - Hypoacusis [Not Recovered/Not Resolved]
  - Skin swelling [Unknown]
  - Pain in extremity [Not Recovered/Not Resolved]
  - Appendicitis [Recovered/Resolved]
  - Appendix disorder [Recovered/Resolved]
  - Skin infection [Recovered/Resolved]
  - Ear infection [Not Recovered/Not Resolved]
  - Syncope [Recovered/Resolved]
  - Cardiac disorder [Unknown]
  - Haemorrhage [Unknown]
  - Post procedural infection [Recovered/Resolved]
  - Haematoma [Not Recovered/Not Resolved]
  - Omphalitis [Unknown]
  - Walking aid user [Unknown]
  - Arthropathy [Recovered/Resolved with Sequelae]
  - Tooth fracture [Recovered/Resolved]
  - Joint swelling [Recovering/Resolving]

NARRATIVE: CASE EVENT DATE: 2013
